FAERS Safety Report 13828168 (Version 2)
Quarter: 2018Q2

REPORT INFORMATION
  Report Type: Spontaneous
  Country: US (occurrence: US)
  Receive Date: 20170803
  Receipt Date: 20180607
  Transmission Date: 20180711
  Serious: Yes (Death, Life-Threatening, Hospitalization, Other)
  Sender: FDA-Public Use
  Company Number: US-MACLEODS PHARMACEUTICALS US LTD-MAC2016004034

PATIENT

DRUGS (5)
  1. VALPROATE SEMISODIUM [Concomitant]
     Active Substance: DIVALPROEX SODIUM
     Indication: DEPRESSION
     Dosage: UNK
     Route: 065
  2. RISPERIDONE. [Concomitant]
     Active Substance: RISPERIDONE
     Indication: DEPRESSION
     Dosage: UNK
     Route: 065
  3. AMLODIPINE BESYLATE 10MG TABLET [Suspect]
     Active Substance: AMLODIPINE BESYLATE
     Indication: PRODUCT USED FOR UNKNOWN INDICATION
     Dosage: 10 MG, EIGHTY TABLET INGESTION, 80 DOSAGE FORM
     Route: 048
  4. TRAZODONE [Concomitant]
     Active Substance: TRAZODONE HYDROCHLORIDE
     Indication: DEPRESSION
     Dosage: UNK
     Route: 065
  5. AMLODIPINE BESYLATE 10MG TABLET [Suspect]
     Active Substance: AMLODIPINE BESYLATE
     Indication: SUICIDE ATTEMPT

REACTIONS (8)
  - Brain injury [Fatal]
  - Mental impairment [Unknown]
  - Cardiac arrest [Unknown]
  - Pulseless electrical activity [Unknown]
  - Brain herniation [Unknown]
  - Acute kidney injury [Unknown]
  - Hypotension [Unknown]
  - Intentional overdose [Unknown]
